FAERS Safety Report 8483647-5 (Version None)
Quarter: 2012Q3

REPORT INFORMATION
  Report Type: 
  Country: None (occurrence: None)
  Receive Date: 20120702
  Receipt Date: 20120626
  Transmission Date: 20120928
  Serious: Yes (Other)
  Sender: FDA-Public Use
  Company Number: US-BAYER-2012-064935

PATIENT

DRUGS (1)
  1. ALEVE (CAPLET) [Suspect]
     Dosage: 8 U, UNK
     Route: 048

REACTIONS (1)
  - VOMITING [None]
